FAERS Safety Report 22525505 (Version 1)
Quarter: 2023Q2

REPORT INFORMATION
  Report Type: Spontaneous
  Country: SK (occurrence: SK)
  Receive Date: 20230606
  Receipt Date: 20230606
  Transmission Date: 20230722
  Serious: Yes (Hospitalization, Other)
  Sender: FDA-Public Use
  Company Number: SK-SA-SAC20230420001780

PATIENT
  Age: 57 Year
  Sex: Female

DRUGS (15)
  1. MYOZYME [Suspect]
     Active Substance: ALGLUCOSIDASE ALFA
     Indication: Glycogen storage disease type II
     Dosage: 23 AMP 50 MG FOR THE FIRST APPLICATION
     Route: 065
     Dates: start: 20220213
  2. MYOZYME [Suspect]
     Active Substance: ALGLUCOSIDASE ALFA
     Dosage: UNK, QOW
     Route: 042
     Dates: start: 20221213
  3. MYOZYME [Suspect]
     Active Substance: ALGLUCOSIDASE ALFA
     Dosage: UNK, QOW
     Route: 065
     Dates: start: 20221227
  4. PROLIA [Concomitant]
     Active Substance: DENOSUMAB
     Dosage: UNK
     Dates: start: 20230509
  5. PROLIA [Concomitant]
     Active Substance: DENOSUMAB
     Dosage: UNK, Q6M
  6. CALTRATE [Concomitant]
     Active Substance: CALCIUM CARBONATE
     Dosage: 600/400 1X1 EVERY OTHER DAY
  7. DICLOFENAC SODIUM [Concomitant]
     Active Substance: DICLOFENAC SODIUM
     Dosage: 2X 1 TABLET
  8. PREGABALIN [Concomitant]
     Active Substance: PREGABALIN
     Dosage: 75 MG IN THE EVENING
  9. ALFACALCIDOL [Concomitant]
     Active Substance: ALFACALCIDOL
     Dosage: 1X1 EVERY OTHER DAY 1 MICROGRAM
  10. OMEPRAZOLE [Concomitant]
     Active Substance: OMEPRAZOLE
     Dosage: 20 MG, BID
  11. PREDNISONE [Concomitant]
     Active Substance: PREDNISONE
     Dosage: 20 MG, QD
     Route: 048
  12. ESCITALOPRAM [Concomitant]
     Active Substance: ESCITALOPRAM OXALATE
     Dosage: 10 MG, QD
  13. TRAZODONE HYDROCHLORIDE [Concomitant]
     Active Substance: TRAZODONE HYDROCHLORIDE
     Dosage: 150 MG, QD
  14. HERBALS [Concomitant]
     Active Substance: HERBALS
     Dosage: UNK UNK, TID
  15. IMMUNE GLOBULIN NOS [Concomitant]
     Active Substance: IMMUNE GLOBULIN NOS
     Dosage: 0.4 G / KG PER DAY FOR 5 DAYS
     Route: 042

REACTIONS (18)
  - Respiratory failure [Recovered/Resolved]
  - Hypercapnia [Unknown]
  - Oxygen saturation decreased [Unknown]
  - Dyspnoea [Unknown]
  - Loss of consciousness [Unknown]
  - Somnolence [Unknown]
  - Pneumonia bacterial [Unknown]
  - Muscular weakness [Unknown]
  - Pain in extremity [Unknown]
  - Hypertension [Unknown]
  - Weight decreased [Unknown]
  - Depressed mood [Unknown]
  - Vertigo [Unknown]
  - Chronic gastritis [Unknown]
  - Alopecia [Recovered/Resolved]
  - Liver disorder [Unknown]
  - Fatigue [Unknown]
  - Arthralgia [Recovered/Resolved]

NARRATIVE: CASE EVENT DATE: 20220907
